FAERS Safety Report 6730237-8 (Version None)
Quarter: 2010Q2

REPORT INFORMATION
  Report Type: 
  Country: None (occurrence: None)
  Receive Date: 20100512
  Receipt Date: 20100323
  Transmission Date: 20101027
  Serious: No
  Sender: FDA-Public Use
  Company Number: 1000012509

PATIENT
  Age: 65 Year
  Sex: Female

DRUGS (5)
  1. SAVELLA [Suspect]
     Indication: FIBROMYALGIA
     Dosage: 12.5 MG (12.5 MG, 1 IN 1 D), ORAL ; 25 MG (12.5 MG, 2 IN 1 D), ORAL ;  50 MG (25 MG, 2 IN 1 D), ORAL
     Route: 048
     Dates: start: 20100314, end: 20100301
  2. SAVELLA [Suspect]
     Indication: FIBROMYALGIA
     Dosage: 12.5 MG (12.5 MG, 1 IN 1 D), ORAL ; 25 MG (12.5 MG, 2 IN 1 D), ORAL ;  50 MG (25 MG, 2 IN 1 D), ORAL
     Route: 048
     Dates: start: 20100311, end: 20100311
  3. SAVELLA [Suspect]
     Indication: FIBROMYALGIA
     Dosage: 12.5 MG (12.5 MG, 1 IN 1 D), ORAL ; 25 MG (12.5 MG, 2 IN 1 D), ORAL ;  50 MG (25 MG, 2 IN 1 D), ORAL
     Route: 048
     Dates: start: 20100312, end: 20100313
  4. AMBIEN [Concomitant]
  5. ATENOLOL [Concomitant]

REACTIONS (9)
  - BACK PAIN [None]
  - DIZZINESS [None]
  - HAIR GROWTH ABNORMAL [None]
  - HEADACHE [None]
  - HOT FLUSH [None]
  - INSOMNIA [None]
  - MUSCLE SPASMS [None]
  - NAUSEA [None]
  - VAGINAL HAEMORRHAGE [None]
